FAERS Safety Report 25730783 (Version 1)
Quarter: 2025Q3

REPORT INFORMATION
  Report Type: Spontaneous
  Country: EU (occurrence: EU)
  Receive Date: 20250827
  Receipt Date: 20250827
  Transmission Date: 20251020
  Serious: Yes (Other)
  Sender: MYLAN
  Company Number: EU-ESTEVE-2025-04591

PATIENT
  Age: 55 Year

DRUGS (3)
  1. ROPIVACAINE [Suspect]
     Active Substance: ROPIVACAINE
     Indication: Product used for unknown indication
     Dosage: 9.595 MILLIGRAM, QD
  2. PRIALT [Suspect]
     Active Substance: ZICONOTIDE ACETATE
     Indication: Product used for unknown indication
     Dosage: 2.952 MICROGRAM, QD (CONCENTRATION: 2.4 MCG/ML)
  3. MORPHINE [Suspect]
     Active Substance: MORPHINE
     Indication: Product used for unknown indication
     Dosage: 11.563 MILLIGRAM, QD

REACTIONS (4)
  - Implant site necrosis [Unknown]
  - Product use issue [Unknown]
  - Off label use [Unknown]
  - Device leakage [Unknown]
